FAERS Safety Report 17347546 (Version 1)
Quarter: 2020Q1

REPORT INFORMATION
  Report Type: Spontaneous
  Country: US (occurrence: US)
  Receive Date: 20200114
  Receipt Date: 20200114
  Transmission Date: 20200409
  Serious: Yes (Other)
  Sender: FDA-Public Use
  Company Number: None

PATIENT
  Age: 83 Year
  Sex: Female
  Weight: 84.82 kg

DRUGS (5)
  1. EZETIMIBE 10MG TABLETS [Suspect]
     Active Substance: EZETIMIBE
     Indication: BLOOD CHOLESTEROL INCREASED
     Dosage: ?          QUANTITY:1 PILL;?
     Route: 048
     Dates: start: 20191212, end: 20191223
  2. ASPIRIN. [Concomitant]
     Active Substance: ASPIRIN
  3. VIT D [Concomitant]
     Active Substance: VITAMIN D NOS
  4. METOPROLOL. [Concomitant]
     Active Substance: METOPROLOL
  5. CALCIUM [Concomitant]
     Active Substance: CALCIUM

REACTIONS (1)
  - Palpitations [None]

NARRATIVE: CASE EVENT DATE: 20191010
